FAERS Safety Report 10234679 (Version 1)
Quarter: 2014Q2

REPORT INFORMATION
  Report Type: Spontaneous
  Country: PT (occurrence: PT)
  Receive Date: 20140613
  Receipt Date: 20140613
  Transmission Date: 20141212
  Serious: Yes (Hospitalization, Other)
  Sender: FDA-Public Use
  Company Number: PT-AMGEN-PRTSP2014042418

PATIENT
  Age: 44 Year
  Sex: Male

DRUGS (1)
  1. ARANESP [Suspect]
     Indication: ANAEMIA
     Dosage: 10 MCG/0.4 ML, UNK
     Route: 058
     Dates: start: 20140428

REACTIONS (4)
  - Rhabdomyolysis [Unknown]
  - Rash generalised [Unknown]
  - Rash pruritic [Unknown]
  - Myalgia [Unknown]
